FAERS Safety Report 7438990-5 (Version None)
Quarter: 2011Q2

REPORT INFORMATION
  Report Type: 
  Country: None (occurrence: None)
  Receive Date: 20110427
  Receipt Date: 20110418
  Transmission Date: 20111010
  Serious: Yes (Hospitalization)
  Sender: FDA-Public Use
  Company Number: US-US-EMD SERONO, INC.-7040468

PATIENT
  Sex: Male
  Weight: 64 kg

DRUGS (2)
  1. VITAMIN D [Concomitant]
  2. REBIF [Suspect]
     Indication: MULTIPLE SCLEROSIS
     Route: 058
     Dates: start: 20101018

REACTIONS (2)
  - ASTHENIA [None]
  - CHOLECYSTITIS INFECTIVE [None]
